FAERS Safety Report 6272305-3 (Version None)
Quarter: 2009Q3

REPORT INFORMATION
  Report Type: 
  Country: None (occurrence: None)
  Receive Date: 20090713
  Receipt Date: 20090313
  Transmission Date: 20100115
  Serious: No
  Sender: FDA-Public Use
  Company Number: 2009BM000061

PATIENT
  Age: 20 Year
  Sex: Female
  Weight: 71 kg

DRUGS (2)
  1. KUVAN [Suspect]
     Indication: PHENYLKETONURIA
     Dosage: 1400 MG;QD;PO 1400 MG;QD;PO
     Route: 048
     Dates: start: 20081222, end: 20081223
  2. KUVAN [Suspect]
     Indication: PHENYLKETONURIA
     Dosage: 1400 MG;QD;PO 1400 MG;QD;PO
     Route: 048
     Dates: start: 20090104

REACTIONS (4)
  - ABDOMINAL PAIN [None]
  - DIARRHOEA [None]
  - NAUSEA [None]
  - VOMITING [None]
